FAERS Safety Report 19069954 (Version 2)
Quarter: 2021Q2

REPORT INFORMATION
  Report Type: Report from Study
  Country: CA (occurrence: CA)
  Receive Date: 20210329
  Receipt Date: 20210430
  Transmission Date: 20210717
  Serious: Yes (Hospitalization, Other)
  Sender: FDA-Public Use
  Company Number: CA-REGENERON PHARMACEUTICALS, INC.-2020-80490

PATIENT

DRUGS (2)
  1. CEMIPLIMAB [Suspect]
     Active Substance: CEMIPLIMAB
     Dosage: UNK UNK, QCY
     Route: 042
     Dates: start: 20210226, end: 20210226
  2. CEMIPLIMAB [Suspect]
     Active Substance: CEMIPLIMAB
     Indication: SKIN SQUAMOUS CELL CARCINOMA METASTATIC
     Dosage: 350 MG, Q3W
     Route: 042
     Dates: start: 20200904, end: 20200904

REACTIONS (8)
  - Transient ischaemic attack [Not Recovered/Not Resolved]
  - Therapy interrupted [Unknown]
  - Malignant neoplasm progression [Not Recovered/Not Resolved]
  - Fatigue [Not Recovered/Not Resolved]
  - Dry mouth [Not Recovered/Not Resolved]
  - Therapy interrupted [Unknown]
  - Blood pressure increased [Not Recovered/Not Resolved]
  - Product dose omission issue [Unknown]

NARRATIVE: CASE EVENT DATE: 20200904
